FAERS Safety Report 25735423 (Version 1)
Quarter: 2025Q3

REPORT INFORMATION
  Report Type: Spontaneous
  Country: PR (occurrence: None)
  Receive Date: 20250827
  Receipt Date: 20250827
  Transmission Date: 20251021
  Serious: Yes (Other)
  Sender: FDA-CTU
  Company Number: None

PATIENT
  Age: 30 Year
  Sex: Male
  Weight: 72.57 kg

DRUGS (4)
  1. CORTICOTROPIN [Suspect]
     Active Substance: CORTICOTROPIN
     Indication: Multiple sclerosis
     Dosage: OTHER STRENGTH : 80UNIT/5ML;?FREQUENCY : DAILY;?
     Route: 058
  2. ditiazem hcl [Concomitant]
  3. ESTRADIOL VALERATE [Concomitant]
     Active Substance: ESTRADIOL VALERATE
  4. SPIRONOLACTONE [Concomitant]
     Active Substance: SPIRONOLACTONE

REACTIONS (6)
  - Crying [None]
  - Weight increased [None]
  - Depressed mood [None]
  - Muscular weakness [None]
  - Speech disorder [None]
  - Disturbance in attention [None]

NARRATIVE: CASE EVENT DATE: 20250827
